FAERS Safety Report 25263221 (Version 1)
Quarter: 2025Q2

REPORT INFORMATION
  Report Type: Spontaneous
  Country: US (occurrence: None)
  Receive Date: 20250501
  Receipt Date: 20250501
  Transmission Date: 20250716
  Serious: Yes (Other)
  Sender: FDA-CTU
  Company Number: None

PATIENT
  Age: 85 Year
  Sex: Male

DRUGS (2)
  1. POMALYST [Suspect]
     Active Substance: POMALIDOMIDE
     Indication: Plasma cell myeloma
     Dosage: FREQUENCY : DAILY;?
     Route: 048
     Dates: start: 20250224
  2. WARFARIN [Suspect]
     Active Substance: WARFARIN

REACTIONS (8)
  - Asthenia [None]
  - Pyrexia [None]
  - Chills [None]
  - Pancytopenia [None]
  - Hypotension [None]
  - Anticoagulation drug level above therapeutic [None]
  - Transfusion [None]
  - Therapy interrupted [None]

NARRATIVE: CASE EVENT DATE: 20250427
